FAERS Safety Report 13916836 (Version 1)
Quarter: 2017Q3

REPORT INFORMATION
  Report Type: Report from Study
  Country: US (occurrence: US)
  Receive Date: 20170829
  Receipt Date: 20170829
  Transmission Date: 20171127
  Serious: Yes (Other)
  Sender: FDA-Public Use
  Company Number: US-GILEAD-2017-0290721

PATIENT
  Age: 63 Year
  Sex: Female

DRUGS (10)
  1. AMBRISENTAN [Suspect]
     Active Substance: AMBRISENTAN
     Indication: PULMONARY HYPERTENSION
     Dosage: 10 MG, QD
     Route: 048
     Dates: start: 201012
  2. LANTUS [Concomitant]
     Active Substance: INSULIN GLARGINE
  3. ALLOPURINOL. [Concomitant]
     Active Substance: ALLOPURINOL
  4. CHERATUSSIN [Concomitant]
     Active Substance: AMMONIUM CHLORIDE\DEXTROMETHORPHAN\SODIUM CITRATE
  5. BRIMONIDINE [Concomitant]
     Active Substance: BRIMONIDINE TARTRATE
  6. SEVELAMER [Concomitant]
     Active Substance: SEVELAMER
  7. HYOSCYAMINE. [Concomitant]
     Active Substance: HYOSCYAMINE
  8. LOVASTATIN. [Concomitant]
     Active Substance: LOVASTATIN
  9. INSULIN LISPRO [Concomitant]
     Active Substance: INSULIN LISPRO
  10. ONDANSETRON [Concomitant]
     Active Substance: ONDANSETRON

REACTIONS (3)
  - Memory impairment [Unknown]
  - Drug dose omission [Unknown]
  - Nasal congestion [Not Recovered/Not Resolved]
